FAERS Safety Report 16224982 (Version 2)
Quarter: 2019Q2

REPORT INFORMATION
  Report Type: Spontaneous
  Country: JP (occurrence: JP)
  Receive Date: 20190422
  Receipt Date: 20190619
  Transmission Date: 20190711
  Serious: Yes (Other)
  Sender: FDA-Public Use
  Company Number: JP-PFIZER INC-2019163516

PATIENT
  Age: 71 Year
  Sex: Male

DRUGS (2)
  1. SHAKUYAKUKANZOTO [Suspect]
     Active Substance: HERBALS
     Dosage: UNK
     Dates: end: 201904
  2. LYRICA [Suspect]
     Active Substance: PREGABALIN
     Dosage: UNK
     Dates: start: 201706, end: 201904

REACTIONS (1)
  - Interstitial lung disease [Unknown]
